FAERS Safety Report 23487464 (Version 1)
Quarter: 2024Q1

REPORT INFORMATION
  Report Type: Spontaneous
  Country: US (occurrence: US)
  Receive Date: 20240206
  Receipt Date: 20240206
  Transmission Date: 20240409
  Serious: Yes (Hospitalization, Other)
  Sender: FDA-Public Use
  Company Number: US-MYLANLABS-2024M1011199

PATIENT
  Age: 89 Year

DRUGS (1)
  1. LYRICA [Suspect]
     Active Substance: PREGABALIN
     Indication: Product used for unknown indication
     Dosage: UNK
     Route: 065

REACTIONS (8)
  - Mood altered [Unknown]
  - Dry mouth [Not Recovered/Not Resolved]
  - Depression [Unknown]
  - Neuralgia [Recovering/Resolving]
  - Sleep disorder [Recovering/Resolving]
  - Anger [Unknown]
  - Logorrhoea [Unknown]
  - Condition aggravated [Recovering/Resolving]
